FAERS Safety Report 6012278-1 (Version None)
Quarter: 2008Q4

REPORT INFORMATION
  Report Type: 
  Country: None (occurrence: None)
  Receive Date: 20081216
  Receipt Date: 20080125
  Transmission Date: 20090506
  Serious: Yes (Other)
  Sender: FDA-Public Use
  Company Number: US-WYE-H02320908

PATIENT
  Age: 65 Year
  Sex: Male
  Weight: 137.56 kg

DRUGS (2)
  1. EFFEXOR XR [Suspect]
     Indication: DEPRESSION
     Dosage: 225 MG 1X PER 1 DAY, ORAL ; 225 MG 1X PER 1 DAY, ORAL
     Route: 048
     Dates: start: 20070101, end: 20071101
  2. EFFEXOR XR [Suspect]
     Indication: DEPRESSION
     Dosage: 225 MG 1X PER 1 DAY, ORAL ; 225 MG 1X PER 1 DAY, ORAL
     Route: 048
     Dates: start: 20070101

REACTIONS (3)
  - NERVOUSNESS [None]
  - SUICIDAL IDEATION [None]
  - THINKING ABNORMAL [None]
